FAERS Safety Report 7368862-6 (Version None)
Quarter: 2011Q1

REPORT INFORMATION
  Report Type: 
  Country: None (occurrence: None)
  Receive Date: 20110318
  Receipt Date: 20110318
  Transmission Date: 20110831
  Serious: Yes (Other)
  Sender: FDA-Public Use
  Company Number: None

PATIENT
  Sex: Female

DRUGS (7)
  1. DEPAKOTE [Suspect]
     Indication: BIPOLAR DISORDER
     Dosage: 500MG
     Dates: start: 20110118
  2. DEPAKOTE [Suspect]
     Indication: BIPOLAR DISORDER
     Dosage: 500MG
     Dates: start: 20110211
  3. PROPRANOLOL [Concomitant]
  4. VISTARIL [Concomitant]
  5. BENADRYL [Concomitant]
  6. HYDROCODONE [Concomitant]
  7. ZOLOFT [Concomitant]

REACTIONS (6)
  - NAUSEA [None]
  - TREMOR [None]
  - VOMITING [None]
  - DECREASED APPETITE [None]
  - MOOD SWINGS [None]
  - INSOMNIA [None]
